FAERS Safety Report 8887256 (Version 1)
Quarter: 2012Q4

REPORT INFORMATION
  Report Type: 
  Country: US (occurrence: US)
  Receive Date: 20121101
  Receipt Date: 20121101
  Transmission Date: 20130627
  Serious: Yes (Hospitalization, Other)
  Sender: FDA-Public Use
  Company Number: US-ROCHE-1144148

PATIENT
  Sex: Female
  Weight: 54.48 kg

DRUGS (5)
  1. ACCUTANE [Suspect]
     Indication: PRODUCT USED FOR UNKNOWN INDICATION
     Route: 048
     Dates: start: 19970620, end: 199710
  2. ACCUTANE [Suspect]
     Route: 048
     Dates: start: 19980825, end: 199809
  3. ACCUTANE [Suspect]
     Route: 065
     Dates: start: 1998, end: 1999
  4. TRI-SPRINTEC [Concomitant]
     Indication: CONTRACEPTION
  5. TRIPHASIL [Concomitant]
     Indication: CONTRACEPTION

REACTIONS (6)
  - Colitis ulcerative [Unknown]
  - Inflammatory bowel disease [Unknown]
  - Emotional distress [Not Recovered/Not Resolved]
  - Crohn^s disease [Unknown]
  - Large intestine polyp [Recovered/Resolved]
  - Depression [Unknown]
